FAERS Safety Report 8329555-1 (Version None)
Quarter: 2012Q2

REPORT INFORMATION
  Report Type: 
  Country: None (occurrence: None)
  Receive Date: 20120502
  Receipt Date: 20120424
  Transmission Date: 20120825
  Serious: No
  Sender: FDA-Public Use
  Company Number: US-PFIZER INC-2012100986

PATIENT
  Sex: Female
  Weight: 72.562 kg

DRUGS (2)
  1. INTERFERON BETA-1A [Concomitant]
     Indication: MULTIPLE SCLEROSIS
     Dosage: UNK, (WEEKLY)
     Dates: start: 19990101
  2. PRISTIQ [Suspect]
     Indication: SEROTONIN SYNDROME
     Dosage: 50 MG, DAILY
     Route: 048
     Dates: start: 20110101, end: 20120421

REACTIONS (3)
  - ANXIETY [None]
  - NERVOUSNESS [None]
  - CRYING [None]
